FAERS Safety Report 15481491 (Version 2)
Quarter: 2019Q2

REPORT INFORMATION
  Report Type: Spontaneous
  Country: ES (occurrence: ES)
  Receive Date: 20181010
  Receipt Date: 20190507
  Transmission Date: 20190711
  Serious: Yes (Other)
  Sender: FDA-Public Use
  Company Number: ES-AUROBINDO-AUR-APL-2018-049271

PATIENT

DRUGS (1)
  1. LOSARTAN. [Suspect]
     Active Substance: LOSARTAN
     Indication: HYPERTENSION
     Dosage: 100 MILLIGRAM, DAILY
     Route: 065

REACTIONS (5)
  - Weight decreased [Recovered/Resolved]
  - Dysphonia [Recovered/Resolved]
  - Gastrointestinal disorder [Recovering/Resolving]
  - Cough [Recovered/Resolved]
  - Colitis [Recovered/Resolved]
